FAERS Safety Report 7580607-3 (Version None)
Quarter: 2011Q2

REPORT INFORMATION
  Report Type: 
  Country: None (occurrence: None)
  Receive Date: 20110629
  Receipt Date: 20110621
  Transmission Date: 20111010
  Serious: Yes (Hospitalization)
  Sender: FDA-Public Use
  Company Number: B0729300A

PATIENT

DRUGS (1)
  1. LAPATINIB [Suspect]
     Route: 065
     Dates: start: 20100423, end: 20100825

REACTIONS (1)
  - SKIN HAEMORRHAGE [None]
